FAERS Safety Report 16408863 (Version 2)
Quarter: 2019Q3

REPORT INFORMATION
  Report Type: Spontaneous
  Country: PL (occurrence: PL)
  Receive Date: 20190610
  Receipt Date: 20190703
  Transmission Date: 20191004
  Serious: Yes (Other)
  Sender: FDA-Public Use
  Company Number: PL-SA-2019SA153123

PATIENT
  Age: 69 Year
  Sex: Female

DRUGS (3)
  1. CLEXANE [Suspect]
     Active Substance: ENOXAPARIN SODIUM
     Indication: VENOUS THROMBOSIS
     Dosage: 80 MG, QD
     Route: 058
     Dates: start: 20190518
  2. BISOCARD [Concomitant]
     Active Substance: BISOPROLOL
     Indication: HYPERTENSION
     Dosage: 2 DF, QD
     Route: 048
  3. NEOBIANACID [Concomitant]
     Indication: GASTRIC ULCER
     Dosage: 4 DF, QD
     Route: 048

REACTIONS (3)
  - Dizziness [Recovering/Resolving]
  - Depressed level of consciousness [Recovering/Resolving]
  - Tinnitus [Recovering/Resolving]

NARRATIVE: CASE EVENT DATE: 20190529
